FAERS Safety Report 16661869 (Version 2)
Quarter: 2019Q3

REPORT INFORMATION
  Report Type: Spontaneous
  Country: FR (occurrence: FR)
  Receive Date: 20190802
  Receipt Date: 20190805
  Transmission Date: 20191004
  Serious: Yes (Other)
  Sender: FDA-Public Use
  Company Number: FR-SA-2019SA202493

PATIENT
  Age: 90 Year
  Sex: Male
  Weight: 67.2 kg

DRUGS (10)
  1. TAMSULOSIN HYDROCHLORIDE. [Suspect]
     Active Substance: TAMSULOSIN HYDROCHLORIDE
     Indication: BENIGN PROSTATIC HYPERPLASIA
     Dosage: 0.4 UG, QD
     Route: 048
  2. OXAZEPAM. [Suspect]
     Active Substance: OXAZEPAM
     Indication: PSYCHOTIC DISORDER
     Dosage: 25 MG, QD
     Route: 048
  3. LEPTICUR [Suspect]
     Active Substance: TROPATEPINE HYDROCHLORIDE
     Indication: PARKINSONISM
     Dosage: 1 DF, QD
     Route: 048
  4. SOLIFENACIN SUCCINATE. [Suspect]
     Active Substance: SOLIFENACIN SUCCINATE
     Indication: HYPERTONIC BLADDER
     Dosage: 1 DF, QD
     Route: 048
  5. AMISULPRIDE [Suspect]
     Active Substance: AMISULPRIDE
     Indication: PSYCHOTIC DISORDER
     Dosage: 100 MG, QD
     Route: 048
  6. OXAZEPAM. [Suspect]
     Active Substance: OXAZEPAM
     Dosage: UNK
     Route: 048
  7. CLOPIDOGREL BISULFATE. [Suspect]
     Active Substance: CLOPIDOGREL BISULFATE
     Indication: PRODUCT USED FOR UNKNOWN INDICATION
     Dosage: 75 MG, QD
     Route: 048
  8. FLECAINIDE ACETATE. [Suspect]
     Active Substance: FLECAINIDE ACETATE
     Indication: VENTRICULAR ARRHYTHMIA
     Dosage: 150 MG, QD
     Route: 048
  9. DESLORATADINE. [Suspect]
     Active Substance: DESLORATADINE
     Indication: PRODUCT USED FOR UNKNOWN INDICATION
     Dosage: 5 MG, QD
     Route: 048
  10. MIANSERINE [Suspect]
     Active Substance: MIANSERIN HYDROCHLORIDE
     Indication: PSYCHOTIC DISORDER
     Dosage: 30 MG, QD
     Route: 049

REACTIONS (2)
  - Confusional state [Recovered/Resolved]
  - Fall [Recovered/Resolved]

NARRATIVE: CASE EVENT DATE: 20180108
